FAERS Safety Report 6234359-X (Version None)
Quarter: 2009Q2

REPORT INFORMATION
  Report Type: 
  Country: None (occurrence: None)
  Receive Date: 20090615
  Receipt Date: 20090512
  Transmission Date: 20091009
  Serious: No
  Sender: FDA-Public Use
  Company Number: DSA_33631_2009

PATIENT
  Sex: Male

DRUGS (6)
  1. XENAZINE [Suspect]
     Indication: HUNTINGTON'S CHOREA
     Dosage: 25 MG BID
     Dates: start: 20090212
  2. ZOLOFT /01011402/ [Concomitant]
  3. SEROQUEL [Concomitant]
  4. ATIVAN [Concomitant]
  5. XANAX [Concomitant]
  6. BACLOFEN [Concomitant]

REACTIONS (1)
  - DEPRESSION [None]
